FAERS Safety Report 5690901-9 (Version None)
Quarter: 2008Q2

REPORT INFORMATION
  Report Type: 
  Country: None (occurrence: None)
  Receive Date: 20080401
  Receipt Date: 20080325
  Transmission Date: 20081010
  Serious: Yes (Other)
  Sender: FDA-Public Use
  Company Number: BR-ASTRAZENECA-2008UW06113

PATIENT
  Age: 37 Year
  Sex: Female
  Weight: 76 kg

DRUGS (6)
  1. ZOLADEX [Suspect]
     Indication: BREAST CANCER
     Route: 058
     Dates: start: 20061001, end: 20070401
  2. ARIMIDEX [Suspect]
     Indication: BREAST CANCER
     Route: 048
     Dates: start: 20061201
  3. NOLVADEX [Suspect]
     Indication: BREAST CANCER
     Route: 048
     Dates: start: 20060301, end: 20061001
  4. NEOSALDINA [Concomitant]
     Indication: HEADACHE
     Route: 048
     Dates: start: 20060101
  5. DIPIRONA [Concomitant]
     Indication: HEADACHE
     Route: 048
     Dates: start: 20060101
  6. IBUPROFEN [Concomitant]
     Indication: HEADACHE
     Route: 048
     Dates: start: 20060101

REACTIONS (10)
  - BLOOD CHOLESTEROL INCREASED [None]
  - DISEASE PROGRESSION [None]
  - FATIGUE [None]
  - HOT FLUSH [None]
  - HYPERHIDROSIS [None]
  - INSOMNIA [None]
  - JOINT SWELLING [None]
  - METASTASES TO BONE [None]
  - PAIN IN EXTREMITY [None]
  - WEIGHT INCREASED [None]
